FAERS Safety Report 8341185-4 (Version None)
Quarter: 2012Q2

REPORT INFORMATION
  Report Type: 
  Country: None (occurrence: None)
  Receive Date: 20120507
  Receipt Date: 20120423
  Transmission Date: 20120825
  Serious: Yes (Hospitalization)
  Sender: FDA-Public Use
  Company Number: US-ELI_LILLY_AND_COMPANY-US201202000409

PATIENT
  Sex: Male
  Weight: 93.424 kg

DRUGS (12)
  1. LOPRESSOR [Concomitant]
     Indication: HYPERTENSION
     Dosage: 12.5 MG, BID
     Route: 048
  2. PRASUGREL HYDROCHLORIDE [Suspect]
     Indication: ACUTE CORONARY SYNDROME
     Dosage: 10 MG, QD
     Dates: start: 20100630, end: 20110628
  3. LASIX [Concomitant]
     Indication: POLYURIA
     Dosage: 40 MG, QD
     Route: 048
  4. SPIRONOLACTONE [Concomitant]
     Dosage: UNK
     Route: 048
  5. ASPIRIN [Concomitant]
     Indication: ANTIPLATELET THERAPY
     Dosage: 325 MG, QD
     Route: 048
  6. OXYCONTIN [Concomitant]
     Dosage: UNK, PRN
  7. OXYCONTIN [Concomitant]
     Indication: PAIN
     Dosage: 40 MG, BID
     Route: 048
  8. ASPIRIN [Concomitant]
     Dosage: 162 MG, QD
  9. DIOVAN [Concomitant]
     Indication: HYPERTENSION
     Dosage: 80 MG, QD
     Route: 048
     Dates: start: 20110301
  10. OXYCODONE HCL [Concomitant]
     Indication: PAIN
     Dosage: 20 MG, PRN
     Route: 048
  11. PRASUGREL HYDROCHLORIDE [Suspect]
     Dosage: 10 MG, QD
     Dates: start: 20110628
  12. PEPCID [Concomitant]
     Indication: PROPHYLAXIS
     Dosage: 40 MG, QD
     Route: 048

REACTIONS (2)
  - ABDOMINAL PAIN [None]
  - GASTRITIS [None]
